FAERS Safety Report 7792148-9 (Version None)
Quarter: 2011Q4

REPORT INFORMATION
  Report Type: 
  Country: None (occurrence: None)
  Receive Date: 20111003
  Receipt Date: 20110928
  Transmission Date: 20120403
  Serious: Yes (Death, Hospitalization)
  Sender: FDA-Public Use
  Company Number: JP-EISAI INC-E2020-09778-CLI-JP

PATIENT
  Sex: Female
  Weight: 48.8 kg

DRUGS (10)
  1. LORAZEPAM [Concomitant]
     Route: 048
     Dates: start: 20100203
  2. GRAMALIL [Concomitant]
     Indication: DEMENTIA ALZHEIMER'S TYPE
  3. MICARDIS [Concomitant]
     Indication: HYPERTENSION
     Route: 048
  4. YOKU-KAN-SAN [Concomitant]
     Indication: DEMENTIA ALZHEIMER'S TYPE
     Route: 048
     Dates: start: 20070501, end: 20101124
  5. ARICEPT [Suspect]
     Dosage: MARKETED ARICEPT 5 MG DAILY
     Route: 048
     Dates: start: 20090807, end: 20101109
  6. SEROQUEL [Concomitant]
     Indication: DEMENTIA ALZHEIMER'S TYPE
     Route: 048
     Dates: start: 20080612, end: 20101124
  7. TRICHLORMETHIAZIDE [Concomitant]
     Route: 048
  8. ARICEPT [Suspect]
     Dosage: MARKETED ARICEPT 3 MG DAILY
     Route: 048
     Dates: start: 20101110, end: 20101124
  9. NORVASC [Concomitant]
     Indication: HYPERTENSION
     Route: 048
     Dates: end: 20101124
  10. ARICEPT [Suspect]
     Indication: DEMENTIA ALZHEIMER'S TYPE
     Route: 048
     Dates: start: 20090313, end: 20090806

REACTIONS (1)
  - CARDIAC FAILURE [None]
